FAERS Safety Report 16924890 (Version 3)
Quarter: 2019Q4

REPORT INFORMATION
  Report Type: Spontaneous
  Country: US (occurrence: US)
  Receive Date: 20191016
  Receipt Date: 20191210
  Transmission Date: 20200122
  Serious: No
  Sender: FDA-Public Use
  Company Number: US-PFIZER INC-2019444858

PATIENT
  Age: 67 Year
  Sex: Female
  Weight: 62.77 kg

DRUGS (6)
  1. REMERON [Concomitant]
     Active Substance: MIRTAZAPINE
     Dosage: UNK (AT NIGHT)
  2. TRAZODONE [Concomitant]
     Active Substance: TRAZODONE HYDROCHLORIDE
     Indication: SLEEP DISORDER
     Dosage: UNK (AT NIGHT)
  3. LYRICA [Suspect]
     Active Substance: PREGABALIN
     Indication: OSTEOARTHRITIS
  4. TIZANIDINE. [Concomitant]
     Active Substance: TIZANIDINE
     Dosage: UNK (COUPLE OF TIMES A WEEK)
  5. LYRICA [Suspect]
     Active Substance: PREGABALIN
     Indication: FIBROMYALGIA
     Dosage: 150 MG, 2X/DAY (1 CAPSULE 2 TIMES EVERY DAY)
     Route: 048
  6. CYMBALTA [Concomitant]
     Active Substance: DULOXETINE HYDROCHLORIDE
     Dosage: UNK, DAILY

REACTIONS (8)
  - Musculoskeletal discomfort [Unknown]
  - Neck pain [Unknown]
  - Musculoskeletal pain [Unknown]
  - Back pain [Unknown]
  - Discomfort [Unknown]
  - Hypoaesthesia [Unknown]
  - Muscle tightness [Unknown]
  - Paraesthesia [Unknown]
